FAERS Safety Report 5081600-5 (Version None)
Quarter: 2006Q3

REPORT INFORMATION
  Report Type: 
  Country: None (occurrence: None)
  Receive Date: 20060811
  Receipt Date: 20060726
  Transmission Date: 20061208
  Serious: Yes (Death, Hospitalization)
  Sender: FDA-Public Use
  Company Number: 2006S1006913

PATIENT
  Age: 77 Year
  Sex: Male

DRUGS (2)
  1. CLOZAPINE (CLOZAPINE) (25 MG) [Suspect]
     Indication: ABNORMAL BEHAVIOUR
     Dosage: SEE IMAGE
     Route: 048
  2. PAROXETINE (PAROXETINE) (20 MG) [Suspect]
     Indication: ABNORMAL BEHAVIOUR
     Dosage: 20 MG; QD; UNKNOWN
     Route: 065

REACTIONS (6)
  - CONFUSIONAL STATE [None]
  - LETHARGY [None]
  - MULTI-ORGAN FAILURE [None]
  - MUSCLE RIGIDITY [None]
  - MUSCLE SPASMS [None]
  - PYREXIA [None]
